FAERS Safety Report 23313666 (Version 2)
Quarter: 2025Q3

REPORT INFORMATION
  Report Type: Spontaneous
  Country: US (occurrence: US)
  Receive Date: 20231219
  Receipt Date: 20250909
  Transmission Date: 20251021
  Serious: Yes (Hospitalization, Other)
  Sender: PFIZER
  Company Number: US-PFIZER INC-202300444504

PATIENT
  Age: 73 Year
  Sex: Male
  Weight: 136.08 kg

DRUGS (14)
  1. XELJANZ XR [Suspect]
     Active Substance: TOFACITINIB CITRATE
     Indication: Rheumatoid arthritis
     Dosage: 11 MG, 1X/DAY
     Route: 048
     Dates: end: 20231204
  2. VITAMIN D3 [Concomitant]
     Active Substance: CHOLECALCIFEROL
     Dosage: 40000 IU, DAILY
     Route: 048
  3. VITAMIN B12 [Concomitant]
     Active Substance: CYANOCOBALAMIN
     Indication: Pernicious anaemia
     Route: 060
  4. ELIQUIS [Concomitant]
     Active Substance: APIXABAN
     Indication: Pulmonary embolism
     Dosage: 5 MG, 2X/DAY
     Route: 048
  5. ELIQUIS [Concomitant]
     Active Substance: APIXABAN
  6. ROSUVASTATIN [Concomitant]
     Active Substance: ROSUVASTATIN
     Indication: Blood cholesterol
     Dosage: 20 MG, DAILY
     Route: 048
  7. EZETIMIBE [Concomitant]
     Active Substance: EZETIMIBE
     Indication: Blood cholesterol
     Dosage: 10 MG, DAILY
     Route: 048
  8. MAGNESIUM GLYCINATE [Concomitant]
     Active Substance: MAGNESIUM GLYCINATE
     Indication: Postural orthostatic tachycardia syndrome
     Dosage: 120 MG, 1X/DAY
     Route: 048
  9. SALT [Concomitant]
     Active Substance: SODIUM CHLORIDE
     Indication: Postural orthostatic tachycardia syndrome
     Dosage: 500 MG, 2X/DAY
     Route: 048
  10. SYNTHROID [Concomitant]
     Active Substance: LEVOTHYROXINE SODIUM
     Indication: Autoimmune thyroiditis
     Dosage: 200 UG, DAILY
     Route: 048
  11. SYNTHROID [Concomitant]
     Active Substance: LEVOTHYROXINE SODIUM
  12. MAGNESIUM [Concomitant]
     Active Substance: MAGNESIUM
  13. TYLENOL [Concomitant]
     Active Substance: ACETAMINOPHEN
  14. ZETIA [Concomitant]
     Active Substance: EZETIMIBE

REACTIONS (10)
  - Prostatitis [Unknown]
  - Asthenia [Unknown]
  - Pain [Unknown]
  - Cystitis [Recovering/Resolving]
  - Sepsis [Unknown]
  - Pyrexia [Unknown]
  - Freezing phenomenon [Unknown]
  - Condition aggravated [Unknown]
  - Peripheral swelling [Unknown]
  - Arthralgia [Unknown]

NARRATIVE: CASE EVENT DATE: 20231204
